FAERS Safety Report 5591985-9 (Version None)
Quarter: 2008Q1

REPORT INFORMATION
  Report Type: 
  Country: None (occurrence: None)
  Receive Date: 20080115
  Receipt Date: 20080111
  Transmission Date: 20080703
  Serious: Yes (Death, Hospitalization)
  Sender: FDA-Public Use
  Company Number: FR-SANOFI-SYNTHELABO-F01200800054

PATIENT
  Sex: Male

DRUGS (7)
  1. UNKNOWN GENERIC DRUG [Concomitant]
     Dates: end: 20040509
  2. CORVASAL [Concomitant]
     Dates: end: 20040509
  3. CELECTOL [Concomitant]
     Dates: end: 20040509
  4. VASTAREL [Concomitant]
     Dates: end: 20040509
  5. NITRODERM [Concomitant]
     Dates: end: 20040509
  6. OXALIPLATIN [Suspect]
     Indication: HEPATIC NEOPLASM MALIGNANT
     Dosage: 140 MG/M2
     Route: 041
     Dates: start: 20040314, end: 20040314
  7. CAPECITABINE [Suspect]
     Dosage: 2100 G
     Route: 048
     Dates: start: 20040313, end: 20040327

REACTIONS (4)
  - ASTHENIA [None]
  - CARDIAC FAILURE [None]
  - DIARRHOEA [None]
  - DYSPNOEA [None]
